FAERS Safety Report 9049999 (Version 1)
Quarter: 2013Q1

REPORT INFORMATION
  Report Type: Spontaneous
  Country: US (occurrence: US)
  Receive Date: 20130205
  Receipt Date: 20130205
  Transmission Date: 20140127
  Serious: No
  Sender: FDA-Public Use
  Company Number: US-GLAXOSMITHKLINE-A0958804A

PATIENT
  Sex: Male

DRUGS (9)
  1. ARIXTRA [Suspect]
     Dosage: 7.5MG PER DAY
     Route: 058
     Dates: start: 201110
  2. LORAZEPAM [Concomitant]
  3. CHLORTHALIDONE [Concomitant]
  4. FUROSEMIDE [Concomitant]
  5. PREDNISONE [Concomitant]
  6. VITAMIN D [Concomitant]
  7. ALLOPURINOL [Concomitant]
  8. NORVASC [Concomitant]
  9. FLOMAX [Concomitant]

REACTIONS (1)
  - Injection site pain [Unknown]
